FAERS Safety Report 24886022 (Version 1)
Quarter: 2025Q1

REPORT INFORMATION
  Report Type: Spontaneous
  Country: US (occurrence: US)
  Receive Date: 20250125
  Receipt Date: 20250125
  Transmission Date: 20250409
  Serious: Yes (Other)
  Sender: BRISTOL-MYERS SQUIBB COMPANY
  Company Number: US-CELGENE-USA-20210601507

PATIENT
  Sex: Male

DRUGS (1)
  1. THALOMID [Suspect]
     Active Substance: THALIDOMIDE
     Indication: Mantle cell lymphoma
     Dosage: 200 MILLIGRAM
     Route: 048

REACTIONS (2)
  - Renal cell carcinoma [Unknown]
  - Neuropathy peripheral [Unknown]
